FAERS Safety Report 5454739-X (Version None)
Quarter: 2007Q3

REPORT INFORMATION
  Report Type: 
  Country: None (occurrence: None)
  Receive Date: 20070917
  Receipt Date: 20060802
  Transmission Date: 20080115
  Serious: No
  Sender: FDA-Public Use
  Company Number: US-ASTRAZENECA-2006UW15463

PATIENT
  Age: 52 Year
  Sex: Female
  Weight: 81.6 kg

DRUGS (4)
  1. SEROQUEL [Suspect]
     Indication: BIPOLAR DISORDER
     Route: 048
  2. SEROQUEL [Suspect]
     Route: 048
  3. LAMICTAL [Concomitant]
  4. CELEXA [Concomitant]

REACTIONS (2)
  - CYSTITIS [None]
  - FUNGAL INFECTION [None]
